FAERS Safety Report 4265812-6 (Version None)
Quarter: 2004Q1

REPORT INFORMATION
  Report Type: 
  Country: None (occurrence: None)
  Receive Date: 20040106
  Receipt Date: 20031224
  Transmission Date: 20041129
  Serious: Yes (Hospitalization, Other)
  Sender: FDA-Public Use
  Company Number: US-JNJFOC-20031205343

PATIENT
  Age: 74 Year
  Sex: Male

DRUGS (3)
  1. INFLIXIMAB (INFLIXIAMB, RECOMBINANT) LYOPHILIZED POWDER [Suspect]
     Indication: RHEUMATOID ARTHRITIS
     Dosage: INTRAVENOUS
     Route: 042
     Dates: start: 20030315
  2. METHOTREXATE [Concomitant]
  3. PRILOSEC (PRILOSEC) [Concomitant]

REACTIONS (2)
  - SQUAMOUS CELL CARCINOMA [None]
  - TONGUE NEOPLASM MALIGNANT STAGE UNSPECIFIED [None]
